FAERS Safety Report 5586007-X (Version None)
Quarter: 2008Q1

REPORT INFORMATION
  Report Type: 
  Country: None (occurrence: None)
  Receive Date: 20080104
  Receipt Date: 20071219
  Transmission Date: 20080703
  Serious: Yes (Hospitalization, Other)
  Sender: FDA-Public Use
  Company Number: PAR_01828_2008

PATIENT
  Age: 7 Year
  Sex: Female

DRUGS (3)
  1. IBUPROFEN [Suspect]
     Indication: ABDOMINAL PAIN
     Dosage: (150 MG; ORAL)
     Route: 048
  2. DICLOFENAC (DICLOFENAC) [Suspect]
     Indication: ABDOMINAL PAIN
     Dosage: (25 MG, RECTAL)
     Route: 054
  3. CEFTRIAXONE [Concomitant]

REACTIONS (4)
  - BLOOD PRESSURE INCREASED [None]
  - PERITONEAL DIALYSIS [None]
  - RENAL FAILURE ACUTE [None]
  - RENAL TUBULAR NECROSIS [None]
